FAERS Safety Report 8328432-X (Version None)
Quarter: 2012Q2

REPORT INFORMATION
  Report Type: 
  Country: None (occurrence: None)
  Receive Date: 20120502
  Receipt Date: 20120423
  Transmission Date: 20120825
  Serious: Yes (Hospitalization)
  Sender: FDA-Public Use
  Company Number: JP-VERTEX PHARMACEUTICALS INC.-AE-2012-006080

PATIENT
  Age: 62 Year
  Sex: Female

DRUGS (11)
  1. RIBAVIRIN [Concomitant]
     Route: 048
     Dates: start: 20120302, end: 20120321
  2. RIBAVIRIN [Concomitant]
     Route: 048
     Dates: start: 20120322
  3. PEGINTERFERON ALFA-2B [Concomitant]
     Route: 051
     Dates: start: 20120301, end: 20120314
  4. PEGINTERFERON ALFA-2B [Concomitant]
     Route: 051
     Dates: start: 20120315
  5. PEGINTERFERON ALFA-2B [Concomitant]
     Route: 051
     Dates: start: 20120223, end: 20120229
  6. RIBAVIRIN [Concomitant]
     Route: 048
     Dates: start: 20120216, end: 20120301
  7. PEGINTERFERON ALFA-2B [Concomitant]
     Indication: HEPATITIS C
     Route: 051
     Dates: start: 20120106, end: 20120222
  8. TALION OD [Concomitant]
     Route: 048
     Dates: start: 20120105, end: 20120219
  9. TELAVIC (TELAPREVIR) [Suspect]
     Indication: HEPATITIS C
     Route: 048
     Dates: start: 20120106, end: 20120220
  10. RIBAVIRIN [Concomitant]
     Indication: HEPATITIS C
     Route: 048
     Dates: start: 20120106, end: 20120215
  11. TELAVIC (TELAPREVIR) [Suspect]
     Route: 048
     Dates: start: 20120221, end: 20120301

REACTIONS (3)
  - BRONCHITIS [None]
  - DECREASED APPETITE [None]
  - NAUSEA [None]
